FAERS Safety Report 11045395 (Version 3)
Quarter: 2015Q2

REPORT INFORMATION
  Report Type: Report from Study
  Country: CA (occurrence: CA)
  Receive Date: 20150417
  Receipt Date: 20150511
  Transmission Date: 20150821
  Serious: Yes (Other)
  Sender: FDA-Public Use
  Company Number: CA-JNJFOC-20150404125

PATIENT
  Age: 47 Year
  Sex: Male
  Weight: 60 kg

DRUGS (11)
  1. REMICADE [Suspect]
     Active Substance: INFLIXIMAB
     Indication: CROHN^S DISEASE
     Route: 042
     Dates: start: 2015
  2. DOMPERIDONE [Concomitant]
     Active Substance: DOMPERIDONE
     Route: 065
  3. HYDROCORTISONE. [Concomitant]
     Active Substance: HYDROCORTISONE
     Indication: PREMEDICATION
     Route: 042
  4. REMICADE [Suspect]
     Active Substance: INFLIXIMAB
     Indication: CROHN^S DISEASE
     Dosage: 0,2,6, 8 WEEKS
     Route: 042
     Dates: start: 20150404
  5. ENTOCORT [Concomitant]
     Active Substance: BUDESONIDE
     Route: 048
  6. IMOVANE [Concomitant]
     Active Substance: ZOPICLONE
     Route: 065
  7. SYNTHROID [Concomitant]
     Active Substance: LEVOTHYROXINE SODIUM
     Route: 065
  8. DURALITH [Concomitant]
     Route: 065
  9. TYLENOL [Concomitant]
     Active Substance: ACETAMINOPHEN
     Indication: PREMEDICATION
     Route: 048
  10. BENADRYL [Concomitant]
     Active Substance: DIPHENHYDRAMINE HYDROCHLORIDE
     Indication: PREMEDICATION
     Route: 042
  11. GRAVOL [Concomitant]
     Active Substance: DIMENHYDRINATE
     Indication: PREMEDICATION
     Route: 042

REACTIONS (9)
  - Pancreatic neoplasm [Unknown]
  - Headache [Unknown]
  - Lymphadenopathy [Unknown]
  - Pain in jaw [Recovering/Resolving]
  - Chest pain [Unknown]
  - Nausea [Recovered/Resolved]
  - Weight increased [Unknown]
  - Pain [Unknown]
  - Infusion related reaction [Recovered/Resolved]

NARRATIVE: CASE EVENT DATE: 201504
